FAERS Safety Report 8885053 (Version 1)
Quarter: 2012Q4

REPORT INFORMATION
  Report Type: 
  Country: US (occurrence: US)
  Receive Date: 20121105
  Receipt Date: 20121105
  Transmission Date: 20130627
  Serious: Yes (Death, Hospitalization, Other)
  Sender: FDA-Public Use
  Company Number: US-BIOGENIDEC-2012BI048809

PATIENT
  Age: 56 Year
  Sex: Female

DRUGS (3)
  1. AVONEX [Suspect]
     Indication: MULTIPLE SCLEROSIS
     Route: 030
     Dates: start: 19970801
  2. AVONEX [Suspect]
     Indication: MULTIPLE SCLEROSIS
     Route: 030
     Dates: end: 2010
  3. BETASERON [Concomitant]

REACTIONS (6)
  - Pneumonia [Fatal]
  - Multiple sclerosis [Unknown]
  - Pancreatitis [Unknown]
  - Quadriplegia [Not Recovered/Not Resolved]
  - Dysphagia [Unknown]
  - Muscle spasticity [Unknown]
